FAERS Safety Report 12508300 (Version 3)
Quarter: 2017Q1

REPORT INFORMATION
  Report Type: Spontaneous
  Country: JP (occurrence: JP)
  Receive Date: 20160629
  Receipt Date: 20170213
  Transmission Date: 20170428
  Serious: No
  Sender: FDA-Public Use
  Company Number: JP-GLAXOSMITHKLINE-JP2016JPN089188

PATIENT

DRUGS (3)
  1. ALLERMIST [Suspect]
     Active Substance: FLUTICASONE FUROATE
     Route: 045
  2. SERETIDE [Suspect]
     Active Substance: FLUTICASONE PROPIONATE\SALMETEROL XINAFOATE
     Indication: ASTHMA
     Route: 055
  3. RINDERON V [Suspect]
     Active Substance: BETAMETHASONE VALERATE
     Dosage: UNK
     Route: 045

REACTIONS (1)
  - Oral candidiasis [Unknown]
